FAERS Safety Report 6270308-6 (Version None)
Quarter: 2009Q3

REPORT INFORMATION
  Report Type: 
  Country: None (occurrence: None)
  Receive Date: 20090716
  Receipt Date: 20090708
  Transmission Date: 20100115
  Serious: Yes (Hospitalization)
  Sender: FDA-Public Use
  Company Number: US-GILEAD-2009-0022635

PATIENT
  Sex: Male
  Weight: 119.4 kg

DRUGS (2)
  1. AMBRISENTAN [Suspect]
     Indication: PULMONARY ARTERIAL HYPERTENSION
     Route: 048
     Dates: start: 20070927, end: 20080117
  2. SILDENAFIL [Concomitant]
     Route: 048
     Dates: start: 20070401

REACTIONS (2)
  - BRONCHIECTASIS [None]
  - HYPOXIA [None]
